FAERS Safety Report 6432800-0 (Version None)
Quarter: 2009Q4

REPORT INFORMATION
  Report Type: 
  Country: None (occurrence: None)
  Receive Date: 20091109
  Receipt Date: 20091103
  Transmission Date: 20100525
  Serious: Yes (Hospitalization)
  Sender: FDA-Public Use
  Company Number: A0814763A

PATIENT
  Age: 52 Year
  Sex: Female

DRUGS (19)
  1. ADVAIR DISKUS 100/50 [Suspect]
     Indication: ASTHMA
     Dosage: 1PUFF TWICE PER DAY
     Route: 055
     Dates: start: 20060101
  2. ALBUTEROL [Suspect]
     Indication: DRUG USE FOR UNKNOWN INDICATION
     Route: 055
  3. VENTOLIN [Concomitant]
  4. PREDNISONE [Concomitant]
  5. MEDICATION FOR HIGH BLOOD PRESSURE [Concomitant]
  6. ALLERGY SHOTS [Concomitant]
  7. MUCINEX [Concomitant]
  8. CLONAZEPAM [Concomitant]
  9. HYDROCHLOROTHIAZIDE [Concomitant]
  10. VITAMIN B-12 [Concomitant]
  11. BENADRYL [Concomitant]
  12. FLUOXETINE [Concomitant]
  13. VERAPAMIL ER [Concomitant]
  14. IBUPROFEN [Concomitant]
  15. EPIPEN [Concomitant]
  16. FLONASE [Concomitant]
  17. STEROIDS [Concomitant]
  18. UNKNOWN DRUG FOR ANXIETY [Concomitant]
  19. UNSPECIFIED THYROID MEDICATION [Concomitant]

REACTIONS (11)
  - BRONCHITIS [None]
  - CARDIAC DISORDER [None]
  - COGNITIVE DISORDER [None]
  - COUGH [None]
  - EXPIRED DRUG ADMINISTERED [None]
  - HYPERTHYROIDISM [None]
  - NERVOUSNESS [None]
  - PNEUMONIA [None]
  - RESPIRATORY TRACT CONGESTION [None]
  - STAPHYLOCOCCAL INFECTION [None]
  - WHEEZING [None]
